FAERS Safety Report 8125572-5 (Version None)
Quarter: 2012Q1

REPORT INFORMATION
  Report Type: 
  Country: None (occurrence: None)
  Receive Date: 20120209
  Receipt Date: 20120201
  Transmission Date: 20120608
  Serious: Yes (Life-Threatening, Hospitalization, Other)
  Sender: FDA-Public Use
  Company Number: KW-ROXANE LABORATORIES, INC.-2012-RO-00583RO

PATIENT
  Age: 28 Year
  Sex: Male

DRUGS (8)
  1. HEROIN [Suspect]
  2. DIAZEPAM [Suspect]
  3. MORPHINE [Suspect]
     Indication: SEDATION
  4. MIDAZOLAM [Suspect]
     Indication: SEDATION
  5. ALCOHOL [Suspect]
  6. COCAINE [Suspect]
  7. MORPHINE [Suspect]
     Indication: ANALGESIC THERAPY
  8. MIDAZOLAM [Suspect]
     Indication: ANALGESIC THERAPY

REACTIONS (7)
  - ACUTE RESPIRATORY DISTRESS SYNDROME [None]
  - MULTIPLE DRUG OVERDOSE [None]
  - ASPIRATION [None]
  - LACTIC ACIDOSIS [None]
  - COMA [None]
  - DRUG WITHDRAWAL SYNDROME [None]
  - SHOCK [None]
